FAERS Safety Report 25733866 (Version 1)
Quarter: 2025Q3

REPORT INFORMATION
  Report Type: Spontaneous
  Country: EU (occurrence: EU)
  Receive Date: 20250828
  Receipt Date: 20250828
  Transmission Date: 20251021
  Serious: Yes (Death, Other)
  Sender: ALKEM
  Company Number: EU-ALKEM LABORATORIES LIMITED-IT-ALKEM-2025-09300

PATIENT
  Sex: Female

DRUGS (1)
  1. ESOMEPRAZOLE MAGNESIUM [Suspect]
     Active Substance: ESOMEPRAZOLE MAGNESIUM
     Indication: Product used for unknown indication
     Route: 065

REACTIONS (4)
  - Hepatic fibrosis [Fatal]
  - Hepatotoxicity [Fatal]
  - Hyperammonaemia [Fatal]
  - Off label use [Fatal]
